FAERS Safety Report 5912284-9 (Version None)
Quarter: 2008Q4

REPORT INFORMATION
  Report Type: 
  Country: None (occurrence: None)
  Receive Date: 20081008
  Receipt Date: 20080929
  Transmission Date: 20090506
  Serious: Yes (Death, Hospitalization)
  Sender: FDA-Public Use
  Company Number: CA-AMGEN-US310608

PATIENT
  Sex: Male

DRUGS (18)
  1. SENSIPAR [Suspect]
     Indication: HYPERPARATHYROIDISM SECONDARY
     Route: 065
     Dates: start: 20080514, end: 20080921
  2. DANAPAROID SODIUM [Concomitant]
     Route: 065
  3. ALTACE [Concomitant]
     Route: 065
  4. AVAPRO [Concomitant]
     Route: 065
  5. NITROGLYCERIN [Concomitant]
     Route: 061
  6. PREVACID [Concomitant]
     Route: 065
  7. PLAVIX [Concomitant]
     Route: 065
  8. ASPIRIN [Concomitant]
     Route: 048
  9. INSULIN [Concomitant]
     Route: 065
  10. VITAMIN CAP [Concomitant]
     Route: 065
  11. DOXERCALCIFEROL [Concomitant]
     Route: 065
  12. AMITRIPTYLINE HCL [Concomitant]
     Route: 065
  13. GABAPENTIN [Concomitant]
     Route: 065
  14. RENAGEL [Concomitant]
     Route: 065
  15. SINEMET [Concomitant]
     Route: 065
  16. NORVASC [Concomitant]
     Route: 065
  17. ATENOLOL [Concomitant]
     Route: 065
  18. PRAVACHOL [Concomitant]
     Route: 065

REACTIONS (2)
  - DEEP VEIN THROMBOSIS [None]
  - MYOCARDIAL INFARCTION [None]
